FAERS Safety Report 26193214 (Version 1)
Quarter: 2025Q4

REPORT INFORMATION
  Report Type: Spontaneous
  Country: US (occurrence: US)
  Receive Date: 20251223
  Receipt Date: 20251223
  Transmission Date: 20260117
  Serious: Yes (Other)
  Sender: STRIDES
  Company Number: US-STRIDES ARCOLAB LIMITED-2025SP000338

PATIENT
  Age: 58 Year
  Sex: Female

DRUGS (5)
  1. METHOTREXATE [Suspect]
     Active Substance: METHOTREXATE
     Indication: Dermatitis atopic
     Dosage: UNK
     Route: 065
  2. TACROLIMUS [Suspect]
     Active Substance: TACROLIMUS
     Indication: Dermatitis atopic
     Dosage: UNK
     Route: 061
  3. DUPILUMAB [Suspect]
     Active Substance: DUPILUMAB
     Indication: Dermatitis atopic
     Dosage: UNK
     Route: 065
  4. DUPILUMAB [Suspect]
     Active Substance: DUPILUMAB
     Dosage: UNK, FIRST LOADING DOSE
     Route: 065
  5. DUPILUMAB [Suspect]
     Active Substance: DUPILUMAB
     Dosage: UNK, SECOND DOSE
     Route: 065

REACTIONS (2)
  - Treatment noncompliance [Unknown]
  - Off label use [Unknown]
